FAERS Safety Report 13826523 (Version 1)
Quarter: 2017Q3

REPORT INFORMATION
  Report Type: Spontaneous
  Country: US (occurrence: US)
  Receive Date: 20170802
  Receipt Date: 20170802
  Transmission Date: 20171127
  Serious: No
  Sender: FDA-Public Use
  Company Number: US-ROCHE-643909

PATIENT
  Age: 60 Year
  Sex: Female

DRUGS (4)
  1. MULTIVITAMIN NOS [Concomitant]
     Active Substance: VITAMINS
     Dosage: DRUG NAME: MULTIVITAMIN
     Route: 065
  2. BONIVA [Suspect]
     Active Substance: IBANDRONATE SODIUM
     Indication: OSTEOPOROSIS
     Route: 048
  3. CALCIUM [Concomitant]
     Active Substance: CALCIUM
     Dosage: DRUG NAME: 600+D
     Route: 065
  4. XANAX [Concomitant]
     Active Substance: ALPRAZOLAM
     Dosage: DOSAGE REGIMEN: 0.5 MG TID PRN.
     Route: 065

REACTIONS (2)
  - Arthropathy [Unknown]
  - Hypertension [Unknown]

NARRATIVE: CASE EVENT DATE: 2008
